FAERS Safety Report 20558054 (Version 3)
Quarter: 2022Q2

REPORT INFORMATION
  Report Type: Spontaneous
  Country: US (occurrence: US)
  Receive Date: 20220307
  Receipt Date: 20220620
  Transmission Date: 20220721
  Serious: Yes (Other)
  Sender: FDA-Public Use
  Company Number: US-BIOCODEX2-2021001451

PATIENT

DRUGS (6)
  1. DIACOMIT [Suspect]
     Active Substance: STIRIPENTOL
     Indication: Severe myoclonic epilepsy of infancy
     Dosage: 750 MG, QD (250 MG THREE TIMES A DAY )
     Route: 065
     Dates: start: 20210205
  2. DIACOMIT [Suspect]
     Active Substance: STIRIPENTOL
     Dosage: 687.5 MG,DAILY
     Route: 065
  3. clobazam hydrochloride [Concomitant]
     Indication: Product used for unknown indication
  4. KEPPRA [Concomitant]
     Active Substance: LEVETIRACETAM
     Indication: Product used for unknown indication
  5. EPIDIOLEX [Concomitant]
     Active Substance: CANNABIDIOL
     Indication: Product used for unknown indication
  6. FINTEPLA [Concomitant]
     Active Substance: FENFLURAMINE
     Indication: Product used for unknown indication

REACTIONS (3)
  - Seizure [Unknown]
  - Fall [Unknown]
  - Product dose omission issue [Unknown]
